FAERS Safety Report 8882867 (Version 1)
Quarter: 2012Q4

REPORT INFORMATION
  Report Type: 
  Country: US (occurrence: US)
  Receive Date: 20121102
  Receipt Date: 20121102
  Transmission Date: 20130627
  Serious: No
  Sender: FDA-Public Use
  Company Number: US-ASTRAZENECA-2011SE70298

PATIENT
  Age: 80 Year
  Sex: Female
  Weight: 86.2 kg

DRUGS (7)
  1. CRESTOR [Suspect]
     Indication: BLOOD CHOLESTEROL INCREASED
     Route: 048
  2. ATACAND HCT [Concomitant]
     Indication: HYPERTENSION
  3. OMEPRAZOLE [Concomitant]
     Indication: GASTROOESOPHAGEAL REFLUX DISEASE
  4. PAXIL [Concomitant]
  5. LEVOTHYROXINE [Concomitant]
     Indication: HYPOTHYROIDISM
  6. SINGULAIR [Concomitant]
     Indication: WHEEZING
  7. SIMVASTATIN [Concomitant]

REACTIONS (6)
  - Hypoaesthesia [Unknown]
  - Thyroid disorder [Unknown]
  - Paraesthesia [Unknown]
  - Paraesthesia [Unknown]
  - Myalgia [Unknown]
  - Myalgia [Unknown]
